FAERS Safety Report 21305927 (Version 2)
Quarter: 2022Q3

REPORT INFORMATION
  Report Type: Report from Study
  Country: CN (occurrence: None)
  Receive Date: 20220908
  Receipt Date: 20220915
  Transmission Date: 20221026
  Serious: Yes (Hospitalization)
  Sender: FDA-Public Use
  Company Number: CN-ROCHE-3173605

PATIENT
  Age: 61 Year
  Sex: Female
  Weight: 63 kg

DRUGS (12)
  1. RITUXIMAB [Suspect]
     Active Substance: RITUXIMAB
     Indication: Non-Hodgkin^s lymphoma
     Dosage: ON 27/JUL/2022, 12:50 PM, SHE RECEIVED MOST RECENT DOSE 600 MG OF STUDY DRUG RITUXIMAB PRIOR TO SAE/
     Route: 042
     Dates: start: 20220706
  2. LENALIDOMIDE [Suspect]
     Active Substance: LENALIDOMIDE
     Indication: Non-Hodgkin^s lymphoma
     Dosage: SHE RECEIVED MOST RECENT DOSE 10 MG OF STUDY DRUG LENALIDOMIDE PRIOR TO SAE ON 23/AUG/2022 AT 2:23PM
     Route: 048
  3. RESERPINE [Concomitant]
     Active Substance: RESERPINE
     Route: 048
     Dates: start: 2021
  4. EUTHYROX [Concomitant]
     Active Substance: LEVOTHYROXINE SODIUM
     Route: 048
     Dates: start: 2021
  5. HMPL-523 [Concomitant]
     Active Substance: HMPL-523
     Indication: Neoplasm malignant
     Dates: start: 20170524
  6. METHYLPREDNISOLONE [Concomitant]
     Active Substance: METHYLPREDNISOLONE
  7. EBASTINE [Concomitant]
     Active Substance: EBASTINE
  8. CALCIUM CARBONATE\CHOLECALCIFEROL [Concomitant]
     Active Substance: CALCIUM CARBONATE\CHOLECALCIFEROL
  9. OMEPRAZOLE [Concomitant]
     Active Substance: OMEPRAZOLE
  10. POTASSIUM CITRATE [Concomitant]
     Active Substance: POTASSIUM CITRATE
  11. LEVOFLOXACIN HYDROCHLORIDE [Concomitant]
     Active Substance: LEVOFLOXACIN HYDROCHLORIDE
  12. METHYLPREDNISOLONE [Concomitant]
     Active Substance: METHYLPREDNISOLONE

REACTIONS (1)
  - Interstitial lung disease [Not Recovered/Not Resolved]

NARRATIVE: CASE EVENT DATE: 20220831
